FAERS Safety Report 10179622 (Version 1)
Quarter: 2014Q2

REPORT INFORMATION
  Report Type: Spontaneous
  Country: US (occurrence: US)
  Receive Date: 20140519
  Receipt Date: 20140519
  Transmission Date: 20141212
  Serious: No
  Sender: FDA-Public Use
  Company Number: US-PFIZER INC-2014135243

PATIENT
  Age: 61 Year
  Sex: Female
  Weight: 84.81 kg

DRUGS (6)
  1. LYRICA [Suspect]
     Indication: NEURALGIA
     Dosage: 75 MG, 2X/DAY
     Dates: end: 2014
  2. LYRICA [Suspect]
     Indication: NEUROPATHY PERIPHERAL
     Dosage: 150 MG, 2X/DAY
     Dates: start: 2014
  3. NORVASC [Concomitant]
     Indication: HYPERTENSION
     Dosage: 10 MG, DAILY
  4. DIOVAN [Concomitant]
     Indication: HYPERTENSION
     Dosage: 150 MG, DAILY
  5. PERCOCET [Concomitant]
     Indication: PAIN
     Dosage: 325 MG, AS NEEDED
  6. XARELTO [Concomitant]
     Indication: THROMBOSIS
     Dosage: 20 MG, DAILY

REACTIONS (4)
  - Local swelling [Not Recovered/Not Resolved]
  - Blister [Unknown]
  - Throat irritation [Unknown]
  - Musculoskeletal stiffness [Unknown]
